FAERS Safety Report 4366217-X (Version None)
Quarter: 2004Q2

REPORT INFORMATION
  Report Type: 
  Country: None (occurrence: None)
  Receive Date: 20040527
  Receipt Date: 20040316
  Transmission Date: 20050107
  Serious: No
  Sender: FDA-Public Use
  Company Number: US-BRISTOL-MYERS SQUIBB COMPANY-12535167

PATIENT
  Sex: Male

DRUGS (12)
  1. DEFINITY [Suspect]
     Route: 040
  2. ACCUPRIL [Concomitant]
  3. ALLOPURINOL [Concomitant]
  4. ASPIRIN [Concomitant]
  5. COREG [Concomitant]
  6. HUMULIN U [Concomitant]
  7. HUMULIN R [Concomitant]
  8. K-DUR 10 [Concomitant]
  9. LASIX [Concomitant]
  10. TRIAMCINOLONE [Concomitant]
  11. TYLENOL [Concomitant]
  12. VIAGRA [Concomitant]

REACTIONS (1)
  - PAIN [None]
